FAERS Safety Report 7509441-7 (Version None)
Quarter: 2011Q2

REPORT INFORMATION
  Report Type: 
  Country: None (occurrence: None)
  Receive Date: 20110519
  Receipt Date: 20110505
  Transmission Date: 20111010
  Serious: Yes (Hospitalization, Other)
  Sender: FDA-Public Use
  Company Number: 2011MA005435

PATIENT
  Age: 65 Year
  Sex: Female

DRUGS (3)
  1. TRIHEXYPHENIDYL HCL [Concomitant]
  2. CHLORPROMAZINE [Concomitant]
  3. HALOPERIDOL LACTATE [Suspect]
     Dosage: 15 MG; QD

REACTIONS (17)
  - PALLOR [None]
  - ELECTROCARDIOGRAM ST SEGMENT DEPRESSION [None]
  - MULTIPLE DRUG OVERDOSE [None]
  - BLOOD UREA INCREASED [None]
  - MYOCARDITIS [None]
  - LOSS OF CONSCIOUSNESS [None]
  - BLOOD PRESSURE DECREASED [None]
  - HYPOREFLEXIA [None]
  - DYSPNOEA [None]
  - VENTRICULAR EXTRASYSTOLES [None]
  - BLOOD GLUCOSE INCREASED [None]
  - HEART RATE IRREGULAR [None]
  - METABOLIC ACIDOSIS [None]
  - BLOOD CREATINE PHOSPHOKINASE INCREASED [None]
  - HAEMOGLOBIN DECREASED [None]
  - HYPOPNOEA [None]
  - RALES [None]
